FAERS Safety Report 7603426-8 (Version None)
Quarter: 2011Q3

REPORT INFORMATION
  Report Type: 
  Country: None (occurrence: None)
  Receive Date: 20110712
  Receipt Date: 20110711
  Transmission Date: 20111222
  Serious: Yes (Death)
  Sender: FDA-Public Use
  Company Number: CO-B.I. PHARMACEUTICALS,INC./RIDGEFIELD-2011-RA-00137RA

PATIENT
  Age: 58 Year
  Sex: Male
  Weight: 92 kg

DRUGS (1)
  1. TELMISARTAN/AMLODIPINE [Suspect]
     Indication: HYPERTENSION
     Dosage: 80/10 MG DAILY
     Route: 048
     Dates: start: 20110417

REACTIONS (3)
  - CHEST PAIN [None]
  - PULMONARY INFARCTION [None]
  - MYOCARDIAL INFARCTION [None]
